FAERS Safety Report 7486350-3 (Version None)
Quarter: 2011Q2

REPORT INFORMATION
  Report Type: 
  Country: None (occurrence: None)
  Receive Date: 20110517
  Receipt Date: 20110511
  Transmission Date: 20111010
  Serious: Yes (Death, Other)
  Sender: FDA-Public Use
  Company Number: PHHY2011FR40154

PATIENT
  Age: 50 Year
  Sex: Male

DRUGS (4)
  1. TACROLIMUS [Suspect]
     Dosage: UNK UKN, UNK
  2. TACROLIMUS [Suspect]
     Dosage: UNK UKN, UNK
  3. CORTICOSTEROID NOS [Suspect]
     Dosage: UNK UKN, UNK
  4. METHYLPREDNISOLONE [Suspect]
     Dosage: UNK UKN, UNK

REACTIONS (4)
  - TRANSPLANT REJECTION [None]
  - DRUG RESISTANCE [None]
  - DEATH [None]
  - HEPATIC FAILURE [None]
